FAERS Safety Report 8862030 (Version 1)
Quarter: 2012Q4

REPORT INFORMATION
  Report Type: 
  Country: US (occurrence: US)
  Receive Date: 20121025
  Receipt Date: 20121025
  Transmission Date: 20130627
  Serious: Yes (Other)
  Sender: FDA-Public Use
  Company Number: US-ROCHE-1134317

PATIENT
  Sex: Female

DRUGS (2)
  1. RAPTIVA [Suspect]
     Indication: PSORIASIS
     Route: 065
  2. RAPTIVA [Suspect]
     Indication: PUSTULAR PSORIASIS

REACTIONS (4)
  - Skin lesion [Unknown]
  - Skin plaque [Unknown]
  - Pain [Unknown]
  - Haemorrhage [Unknown]
